FAERS Safety Report 17934496 (Version 1)
Quarter: 2020Q2

REPORT INFORMATION
  Report Type: Spontaneous
  Country: US (occurrence: US)
  Receive Date: 20200624
  Receipt Date: 20200624
  Transmission Date: 20200714
  Serious: Yes (Death, Other)
  Sender: FDA-Public Use
  Company Number: US-ASTRAZENECA-2020SE79310

PATIENT

DRUGS (1)
  1. BYETTA [Suspect]
     Active Substance: EXENATIDE
     Route: 065
     Dates: start: 201611, end: 201711

REACTIONS (3)
  - Pancreatic carcinoma [Unknown]
  - Pancreatitis [Unknown]
  - Death [Fatal]

NARRATIVE: CASE EVENT DATE: 201710
